FAERS Safety Report 21599259 (Version 2)
Quarter: 2023Q1

REPORT INFORMATION
  Report Type: Spontaneous
  Country: US (occurrence: US)
  Receive Date: 20221115
  Receipt Date: 20230216
  Transmission Date: 20230418
  Serious: Yes (Hospitalization, Other)
  Sender: FDA-Public Use
  Company Number: US-INCYTE CORPORATION-2022IN010822

PATIENT

DRUGS (4)
  1. JAKAFI [Suspect]
     Active Substance: RUXOLITINIB
     Indication: Myelodysplastic syndrome
     Dosage: 5 MILLIGRAM, BID
     Route: 048
     Dates: start: 20221017
  2. JAKAFI [Suspect]
     Active Substance: RUXOLITINIB
     Dosage: 10 MILLIGRAM, BID
     Route: 048
     Dates: start: 20221017
  3. PREDNISONE [Suspect]
     Active Substance: PREDNISONE
     Indication: Product used for unknown indication
     Dosage: 20 MILLIGRAM, QD
     Route: 065
  4. PREDNISONE [Suspect]
     Active Substance: PREDNISONE
     Dosage: 15 MILLIGRAM, QD
     Route: 065

REACTIONS (10)
  - Diarrhoea haemorrhagic [Unknown]
  - Gastrointestinal inflammation [Unknown]
  - Glossodynia [Unknown]
  - Mouth ulceration [Unknown]
  - Pyrexia [Unknown]
  - Fatigue [Unknown]
  - Asthenia [Unknown]
  - Haemoglobin abnormal [Unknown]
  - Osteopenia [Unknown]
  - Off label use [Unknown]

NARRATIVE: CASE EVENT DATE: 20221017
